FAERS Safety Report 6118428-0 (Version None)
Quarter: 2009Q1

REPORT INFORMATION
  Report Type: 
  Country: None (occurrence: None)
  Receive Date: 20090314
  Receipt Date: 20090218
  Transmission Date: 20090719
  Serious: No
  Sender: FDA-Public Use
  Company Number: US-ABBOTT-09P-163-0558179-00

PATIENT
  Sex: Female
  Weight: 59.02 kg

DRUGS (6)
  1. HUMIRA [Suspect]
     Indication: CROHN'S DISEASE
     Dosage: 4 PENS LOADING DOSE, 2 PENS LOADING DOSE
     Route: 058
     Dates: start: 20090204, end: 20090204
  2. HUMIRA [Suspect]
     Dosage: LOADING DOSE
     Route: 058
  3. HUMIRA [Suspect]
     Route: 058
  4. NITROFURANTOIN [Concomitant]
     Indication: BLADDER DISORDER
     Route: 048
  5. BETHANECHOL [Concomitant]
     Indication: BLADDER DISORDER
     Dosage: THREE TIMES A DAY
     Route: 048
  6. MERCAPTOPURINE [Concomitant]
     Indication: CROHN'S DISEASE

REACTIONS (1)
  - INJECTION SITE HAEMORRHAGE [None]
